FAERS Safety Report 8581580-1 (Version None)
Quarter: 2012Q3

REPORT INFORMATION
  Report Type: 
  Country: None (occurrence: None)
  Receive Date: 20120809
  Receipt Date: 20120801
  Transmission Date: 20120928
  Serious: Yes (Other)
  Sender: FDA-Public Use
  Company Number: US-NAPPMUNDI-USA-2012-0090874

PATIENT
  Sex: Male

DRUGS (4)
  1. OXYCONTIN [Suspect]
     Dosage: UNK
     Dates: start: 20090101, end: 20100804
  2. OXYCODONE AND ACETAMINOPHEN [Concomitant]
     Indication: PRODUCT USED FOR UNKNOWN INDICATION
     Dosage: ONE OR TWO 5/325MG TABLETS EVERY 6 HOURS
     Route: 048
     Dates: start: 20120427
  3. FENTANYL [Concomitant]
     Indication: PRODUCT USED FOR UNKNOWN INDICATION
     Dosage: 25 MCG/HR, Q72H
     Route: 062
     Dates: start: 20120316
  4. OXYCONTIN [Suspect]
     Indication: PAIN
     Dosage: 10 MG, TID
     Route: 048
     Dates: start: 20100215

REACTIONS (9)
  - DRUG ABUSE [None]
  - BANKRUPTCY [None]
  - FAMILY STRESS [None]
  - PAIN [None]
  - ANXIETY [None]
  - SUICIDE ATTEMPT [None]
  - DRUG WITHDRAWAL SYNDROME [None]
  - DRUG DEPENDENCE [None]
  - DEPRESSION [None]
